FAERS Safety Report 13573267 (Version 1)
Quarter: 2017Q2

REPORT INFORMATION
  Report Type: Spontaneous
  Country: BE (occurrence: BE)
  Receive Date: 20170523
  Receipt Date: 20170523
  Transmission Date: 20170830
  Serious: Yes (Hospitalization)
  Sender: FDA-Public Use
  Company Number: BE-PFIZER INC-2017216354

PATIENT
  Age: 75 Year
  Sex: Female

DRUGS (2)
  1. SUTENT [Suspect]
     Active Substance: SUNITINIB MALATE
     Dosage: 37.5 MG CYCLIC (2 WEEKS ON, 1 WEEK OFF)
     Route: 048
     Dates: start: 20170511
  2. SUTENT [Suspect]
     Active Substance: SUNITINIB MALATE
     Indication: METASTATIC RENAL CELL CARCINOMA
     Dosage: 50 MG, CYCLIC (2 WEEKS ON, 1 WEEK OFF)
     Route: 048
     Dates: start: 20170330, end: 20170510

REACTIONS (3)
  - Cystitis [Unknown]
  - Nausea [Unknown]
  - Urinary bladder haemorrhage [Unknown]
